FAERS Safety Report 25024242 (Version 3)
Quarter: 2025Q1

REPORT INFORMATION
  Report Type: Report from Study
  Country: ES (occurrence: ES)
  Receive Date: 20250228
  Receipt Date: 20250318
  Transmission Date: 20250409
  Serious: Yes (Hospitalization)
  Sender: ABBVIE
  Company Number: ES-ABBVIE-6099580

PATIENT
  Age: 64 Year
  Sex: Male

DRUGS (3)
  1. CARBIDOPA\LEVODOPA [Suspect]
     Active Substance: CARBIDOPA\LEVODOPA
     Indication: Parkinson^s disease
     Route: 058
     Dates: start: 202501
  2. CARBIDOPA\LEVODOPA [Suspect]
     Active Substance: CARBIDOPA\LEVODOPA
     Route: 058
     Dates: start: 20250120
  3. SINEMET [Concomitant]
     Active Substance: CARBIDOPA\LEVODOPA
     Indication: Product used for unknown indication

REACTIONS (14)
  - Heart rate irregular [Not Recovered/Not Resolved]
  - Freezing phenomenon [Recovered/Resolved]
  - Gait disturbance [Not Recovered/Not Resolved]
  - On and off phenomenon [Recovered/Resolved]
  - Gait inability [Not Recovered/Not Resolved]
  - Musculoskeletal stiffness [Not Recovered/Not Resolved]
  - Blood pressure abnormal [Unknown]
  - Therapeutic response shortened [Recovering/Resolving]
  - Mobility decreased [Not Recovered/Not Resolved]
  - On and off phenomenon [Recovered/Resolved]
  - On and off phenomenon [Recovered/Resolved]
  - Freezing phenomenon [Unknown]
  - Syncope [Recovered/Resolved]
  - Blood pressure abnormal [Unknown]

NARRATIVE: CASE EVENT DATE: 20250101
